FAERS Safety Report 12961416 (Version 2)
Quarter: 2017Q1

REPORT INFORMATION
  Report Type: Spontaneous
  Country: US (occurrence: US)
  Receive Date: 20161121
  Receipt Date: 20170210
  Transmission Date: 20170428
  Serious: Yes (Other)
  Sender: FDA-Public Use
  Company Number: US-ASTRAZENECA-2016SF22413

PATIENT
  Age: 722 Month
  Sex: Female
  Weight: 48.8 kg

DRUGS (12)
  1. XANAX [Concomitant]
     Active Substance: ALPRAZOLAM
     Indication: ANXIETY
     Dosage: 1 MG THREE TIMES DAILY AS NEEDED.
     Route: 048
     Dates: start: 201409
  2. CITALOPRAM [Concomitant]
     Active Substance: CITALOPRAM HYDROBROMIDE
     Indication: ANTIDEPRESSANT THERAPY
     Route: 048
  3. CITALOPRAM [Concomitant]
     Active Substance: CITALOPRAM HYDROBROMIDE
     Indication: ANXIETY
     Route: 048
  4. OXYGEN. [Concomitant]
     Active Substance: OXYGEN
     Dosage: 3.0L CONTINUOUSLY
     Route: 045
     Dates: start: 2013
  5. PERCOCET [Concomitant]
     Active Substance: ACETAMINOPHEN\OXYCODONE HYDROCHLORIDE
     Indication: PAIN
     Dosage: 5/325MG TABLET EVERY FOUR HOURS AS NEEDED
     Route: 048
     Dates: start: 201409
  6. TUDORZA PRESSAIR [Suspect]
     Active Substance: ACLIDINIUM BROMIDE
     Indication: CHRONIC OBSTRUCTIVE PULMONARY DISEASE
     Route: 055
     Dates: start: 2014
  7. ATENOLOL. [Suspect]
     Active Substance: ATENOLOL
     Indication: BLOOD PRESSURE ABNORMAL
     Dosage: 5 MILLIGRAMS OR 10 MILLIGRAMS UNKNOWN
     Route: 048
  8. LISINOPRIL. [Suspect]
     Active Substance: LISINOPRIL
     Indication: BLOOD PRESSURE ABNORMAL
     Dosage: UNKNOWN
     Route: 048
  9. VITAMIN D [Concomitant]
     Active Substance: CHOLECALCIFEROL
     Dosage: 50000 ONCE A WEEK
     Route: 048
  10. RADIATION THERAPY [Concomitant]
     Active Substance: RADIATION THERAPY
     Dates: start: 201409, end: 201511
  11. BREO ELLIPTA [Concomitant]
     Active Substance: FLUTICASONE FUROATE\VILANTEROL TRIFENATATE
  12. CHEMOTHERAPY [Concomitant]
     Active Substance: UNSPECIFIED INGREDIENT
     Dates: start: 201512, end: 201609

REACTIONS (10)
  - Drug dose omission [Unknown]
  - Weight fluctuation [Unknown]
  - Anaemia [Unknown]
  - Device malfunction [Unknown]
  - Lung neoplasm malignant [Unknown]
  - Oropharyngeal pain [Recovered/Resolved]
  - Chronic obstructive pulmonary disease [Unknown]
  - Throat tightness [Recovered/Resolved]
  - Thyroid disorder [Unknown]
  - Intentional product misuse [Unknown]

NARRATIVE: CASE EVENT DATE: 201409
